FAERS Safety Report 16916384 (Version 3)
Quarter: 2019Q4

REPORT INFORMATION
  Report Type: Spontaneous
  Country: FR (occurrence: FR)
  Receive Date: 20191014
  Receipt Date: 20191218
  Transmission Date: 20200122
  Serious: Yes (Death, Life-Threatening)
  Sender: FDA-Public Use
  Company Number: FR-009507513-1910FRA007007

PATIENT
  Age: 54 Year
  Sex: Female
  Weight: 46 kg

DRUGS (5)
  1. MIANSERIN HYDROCHLORIDE [Suspect]
     Active Substance: MIANSERIN HYDROCHLORIDE
     Indication: TOXICITY TO VARIOUS AGENTS
     Dosage: 180 MG (3 TABLETS OF 60 MG IN A SINGLE INTAKE)
     Route: 048
     Dates: start: 20190809
  2. GABAPENTIN. [Suspect]
     Active Substance: GABAPENTIN
     Indication: TOXICITY TO VARIOUS AGENTS
     Dosage: 6000 MILLIGRAM, 20 CAPSULES OF 300 MG IN A SINGLE INTAKE
     Route: 048
     Dates: start: 20190809
  3. ZOLPIDEM [Suspect]
     Active Substance: ZOLPIDEM TARTRATE
     Indication: TOXICITY TO VARIOUS AGENTS
     Dosage: 10 MG, TOTAL (14 TABLETS OF 10 MG IN A SINGLE INTAKE)
     Route: 048
     Dates: start: 20190809
  4. DESLORATADINE. [Suspect]
     Active Substance: DESLORATADINE
     Indication: TOXICITY TO VARIOUS AGENTS
     Dosage: 65 MILLIGRAM, TOTAL, 13 TABLETS OF 5 MG IN A SINGLE INTAKE
     Route: 048
     Dates: start: 20190809
  5. DIFFU-K [Suspect]
     Active Substance: POTASSIUM CHLORIDE
     Indication: TOXICITY TO VARIOUS AGENTS
     Dosage: 13 DF (13 CAPSULES OF 600MG IN A SINGLE INTAKE)
     Route: 048
     Dates: start: 20190809

REACTIONS (6)
  - Toxicity to various agents [Fatal]
  - Arrhythmia [Fatal]
  - Hyperkalaemia [Fatal]
  - Disseminated intravascular coagulation [Fatal]
  - Respiratory disorder [Fatal]
  - Cardio-respiratory arrest [Fatal]

NARRATIVE: CASE EVENT DATE: 20190809
